FAERS Safety Report 16352434 (Version 1)
Quarter: 2019Q2

REPORT INFORMATION
  Report Type: Report from Study
  Country: US (occurrence: US)
  Receive Date: 20190524
  Receipt Date: 20190524
  Transmission Date: 20190711
  Serious: Yes (Other)
  Sender: FDA-Public Use
  Company Number: US-ROCHE-2319220

PATIENT

DRUGS (4)
  1. ATEZOLIZUMAB. [Suspect]
     Active Substance: ATEZOLIZUMAB
     Indication: NON-SMALL CELL LUNG CANCER METASTATIC
     Route: 065
  2. IPILIMUMAB [Suspect]
     Active Substance: IPILIMUMAB
     Indication: NON-SMALL CELL LUNG CANCER METASTATIC
     Route: 065
  3. NIVOLUMAB [Suspect]
     Active Substance: NIVOLUMAB
     Indication: NON-SMALL CELL LUNG CANCER METASTATIC
     Route: 065
  4. PEMBROLIZUMAB. [Suspect]
     Active Substance: PEMBROLIZUMAB
     Indication: NON-SMALL CELL LUNG CANCER METASTATIC
     Route: 065

REACTIONS (9)
  - Aspiration [Unknown]
  - Lymphadenopathy [Unknown]
  - Chest pain [Unknown]
  - Delirium [Unknown]
  - Cardiac failure [Unknown]
  - Pleural infection [Unknown]
  - Dyspnoea [Unknown]
  - Hypoxia [Unknown]
  - Pneumonitis [Unknown]
